FAERS Safety Report 9970955 (Version 1)
Quarter: 2014Q1

REPORT INFORMATION
  Report Type: Report from Study
  Country: US (occurrence: US)
  Receive Date: 20140306
  Receipt Date: 20140306
  Transmission Date: 20141002
  Serious: No
  Sender: FDA-Public Use
  Company Number: US-ABBVIE-13P-163-1150462-00

PATIENT
  Age: 61 Year
  Sex: Female

DRUGS (4)
  1. HUMIRA [Suspect]
     Indication: RHEUMATOID ARTHRITIS
     Dates: start: 201302
  2. PREDNISONE [Concomitant]
     Indication: PRODUCT USED FOR UNKNOWN INDICATION
     Dosage: 1 1/2 DAILY
  3. TRAMADOL [Concomitant]
     Indication: PAIN
     Dosage: EVERY 4-6 HOURS
  4. HYDROCODONE [Concomitant]
     Indication: PAIN
     Dosage: 10/325MG 1-2 EVERY 4-6 HOURS

REACTIONS (5)
  - Chills [Recovered/Resolved]
  - Gastroenteritis viral [Recovered/Resolved]
  - Abdominal pain [Recovered/Resolved]
  - Nausea [Recovered/Resolved]
  - Vomiting [Recovered/Resolved]
